FAERS Safety Report 5986732-2 (Version None)
Quarter: 2008Q4

REPORT INFORMATION
  Report Type: 
  Country: None (occurrence: None)
  Receive Date: 20081209
  Receipt Date: 20080905
  Transmission Date: 20090506
  Serious: No
  Sender: FDA-Public Use
  Company Number: US-AMGEN-KDL306193

PATIENT
  Sex: Female

DRUGS (2)
  1. ENBREL [Suspect]
     Indication: RHEUMATOID ARTHRITIS
     Route: 058
  2. SYNTHROID [Concomitant]

REACTIONS (14)
  - BLOOD CHOLESTEROL INCREASED [None]
  - BURNING SENSATION [None]
  - CONTUSION [None]
  - DYSPHONIA [None]
  - EAR DISORDER [None]
  - HYPOAESTHESIA [None]
  - IMPAIRED HEALING [None]
  - INFLUENZA [None]
  - NODULE ON EXTREMITY [None]
  - PHARYNGEAL ERYTHEMA [None]
  - PULMONARY CONGESTION [None]
  - PURULENCE [None]
  - RALES [None]
  - RHEUMATOID ARTHRITIS [None]
